FAERS Safety Report 15131092 (Version 1)
Quarter: 2018Q3

REPORT INFORMATION
  Report Type: Spontaneous
  Country: NL (occurrence: NL)
  Receive Date: 20180711
  Receipt Date: 20180711
  Transmission Date: 20181010
  Serious: Yes (Hospitalization)
  Sender: FDA-Public Use
  Company Number: PHHY2018NL039140

PATIENT
  Age: 60 Year
  Sex: Male
  Weight: 120 kg

DRUGS (8)
  1. VENLAFAXINE TEVA RETARD [Concomitant]
     Indication: PRODUCT USED FOR UNKNOWN INDICATION
     Dosage: 75 MG, QD(1DD1)
     Route: 065
     Dates: start: 20170907
  2. HYDROCHOROTHIAZIDE [Concomitant]
     Active Substance: HYDROCHLOROTHIAZIDE
     Indication: PRODUCT USED FOR UNKNOWN INDICATION
     Dosage: 25 MG, QD(1DD1)
     Route: 065
     Dates: start: 20170907
  3. CANDESARTAN TEVA [Concomitant]
     Active Substance: CANDESARTAN
     Indication: PRODUCT USED FOR UNKNOWN INDICATION
     Dosage: 16 MG, QD(1DD1)
     Route: 065
     Dates: start: 20170710
  4. COTRIMOXAZOLE [Concomitant]
     Active Substance: SULFAMETHOXAZOLE\TRIMETHOPRIM
     Indication: PRODUCT USED FOR UNKNOWN INDICATION
     Dosage: 1 DF, Q2W
     Route: 065
     Dates: start: 20170828
  5. OMEPRAZOL TEVA [Concomitant]
     Active Substance: OMEPRAZOLE
     Indication: PRODUCT USED FOR UNKNOWN INDICATION
     Dosage: 20 MG, Q12H (2DD1)
     Route: 065
     Dates: start: 20171003
  6. NEORAL [Suspect]
     Active Substance: CYCLOSPORINE
     Indication: BONE MARROW TRANSPLANT REJECTION
     Dosage: 50 MG, Q12H (2DD 2X 25MG)
     Route: 065
     Dates: start: 20180316
  7. ACICLOVIR [Concomitant]
     Active Substance: ACYCLOVIR
     Indication: PRODUCT USED FOR UNKNOWN INDICATION
     Dosage: 800 MG, Q12H 2DD1
     Route: 065
     Dates: start: 20171003
  8. PARACETAMOL [Concomitant]
     Active Substance: ACETAMINOPHEN
     Indication: PRODUCT USED FOR UNKNOWN INDICATION
     Dosage: 1000 MG, QID(4DD ZO NODIG)
     Route: 065

REACTIONS (2)
  - Feeling jittery [Unknown]
  - Dyspnoea [Unknown]

NARRATIVE: CASE EVENT DATE: 20180328
